FAERS Safety Report 10489698 (Version 2)
Quarter: 2014Q4

REPORT INFORMATION
  Report Type: Spontaneous
  Country: US (occurrence: None)
  Receive Date: 20140815
  Receipt Date: 20141003
  Transmission Date: 20150528
  Serious: Yes (Other)
  Sender: FDA-Public Use
  Company Number: ADR-2013-01531

PATIENT
  Sex: Female

DRUGS (3)
  1. BACLOFEN INTRATHECAL [Suspect]
     Active Substance: BACLOFEN
  2. CLONIDINE. [Suspect]
     Active Substance: CLONIDINE
  3. DILAUDID [Suspect]
     Active Substance: HYDROMORPHONE HYDROCHLORIDE

REACTIONS (10)
  - Therapeutic response decreased [None]
  - Bone deformity [None]
  - Device dislocation [None]
  - Implant site reaction [None]
  - Hyperhidrosis [None]
  - Claustrophobia [None]
  - Pyrexia [None]
  - Back pain [None]
  - Clavicle fracture [None]
  - Discomfort [None]
